FAERS Safety Report 6384543-X (Version None)
Quarter: 2009Q4

REPORT INFORMATION
  Report Type: 
  Country: None (occurrence: None)
  Receive Date: 20091001
  Receipt Date: 20090925
  Transmission Date: 20100525
  Serious: Yes (Hospitalization)
  Sender: FDA-Public Use
  Company Number: NL-ALLERGAN-0912474US

PATIENT
  Age: 40 Year
  Sex: Female

DRUGS (8)
  1. BOTULINUM TOXIN TYPE A [Suspect]
     Indication: CYSTITIS INTERSTITIAL
     Dosage: 200 UNITS, SINGLE
     Route: 030
     Dates: start: 20090320, end: 20090320
  2. LIDOCAINE [Concomitant]
     Indication: ANAESTHESIA
     Dosage: 40 ML, SINGLE
     Route: 043
  3. VENTOLIN [Concomitant]
  4. FORMOTEROL FUMARATE [Concomitant]
  5. SINGULAIR [Concomitant]
  6. PULMICORD [Concomitant]
  7. DICLOFENAC SODIUM [Concomitant]
  8. PANTOZOL [Concomitant]

REACTIONS (1)
  - APPENDICITIS [None]
